FAERS Safety Report 6253384-6 (Version None)
Quarter: 2009Q2

REPORT INFORMATION
  Report Type: 
  Country: None (occurrence: None)
  Receive Date: 20090626
  Receipt Date: 20090116
  Transmission Date: 20091009
  Serious: Yes (Hospitalization)
  Sender: FDA-Public Use
  Company Number: 608871

PATIENT
  Age: 71 Year
  Sex: Female

DRUGS (3)
  1. XELODA [Suspect]
     Indication: BREAST CANCER
     Dosage: 1500 MG 2 PER DAY ORAL
     Route: 048
     Dates: start: 20081001
  2. POTASSIUM (POTASSIUM NOS) [Concomitant]
  3. AVELOX [Concomitant]

REACTIONS (2)
  - CHILLS [None]
  - PYREXIA [None]
